FAERS Safety Report 5708099-7 (Version None)
Quarter: 2008Q2

REPORT INFORMATION
  Report Type: 
  Country: None (occurrence: None)
  Receive Date: 20080414
  Receipt Date: 20080325
  Transmission Date: 20081010
  Serious: Yes (Other)
  Sender: FDA-Public Use
  Company Number: WAES 0804ESP00011

PATIENT
  Age: 45 Year
  Sex: Male

DRUGS (5)
  1. ISENTRESS [Suspect]
     Indication: HIV INFECTION
     Dosage: PO
     Route: 048
     Dates: start: 20080218
  2. TAB MARAVIROC [Suspect]
     Indication: HIV INFECTION
     Dosage: 300 MG/BID PO, 150 MG/BID PO
     Route: 048
     Dates: start: 20080218
  3. TAB TIPRANAVIR [Suspect]
     Indication: HIV INFECTION
     Dosage: 500 MG/BID PO
     Route: 048
     Dates: start: 20080218, end: 20080325
  4. TAB RITONAVIR [Suspect]
     Indication: HIV INFECTION
     Dosage: 200 MG/BID PO, 100 MG/BID
     Route: 048
     Dates: start: 20080218, end: 20080325
  5. TAB RITONAVIR [Suspect]
     Indication: HIV INFECTION
     Dosage: 200 MG/BID PO, 100 MG/BID
     Route: 048
     Dates: start: 20080325

REACTIONS (3)
  - ALANINE AMINOTRANSFERASE INCREASED [None]
  - ASPARTATE AMINOTRANSFERASE INCREASED [None]
  - GAMMA-GLUTAMYLTRANSFERASE INCREASED [None]
